FAERS Safety Report 6542051-7 (Version None)
Quarter: 2010Q1

REPORT INFORMATION
  Report Type: 
  Country: None (occurrence: None)
  Receive Date: 20100119
  Receipt Date: 20100111
  Transmission Date: 20100710
  Serious: Yes (Hospitalization, Other)
  Sender: FDA-Public Use
  Company Number: US-JNJFOC-20100105104

PATIENT
  Sex: Female
  Weight: 72.58 kg

DRUGS (2)
  1. SANDOZ FENTANYL TRANSDERMAL SYSTEM [Suspect]
     Indication: PAIN
     Dosage: 100 UG/ HR+100 UG/ HR+75 UG/ HR
     Route: 062
  2. SANDOZ FENTANYL TRANSDERMAL SYSTEM [Suspect]
     Route: 062

REACTIONS (6)
  - HOSPITALISATION [None]
  - HYPERHIDROSIS [None]
  - MALAISE [None]
  - PRODUCT ADHESION ISSUE [None]
  - SPINAL OPERATION [None]
  - WRONG TECHNIQUE IN DRUG USAGE PROCESS [None]
